FAERS Safety Report 7294996-0 (Version None)
Quarter: 2011Q1

REPORT INFORMATION
  Report Type: 
  Country: None (occurrence: None)
  Receive Date: 20110216
  Receipt Date: 20110210
  Transmission Date: 20110831
  Serious: Yes (Other)
  Sender: FDA-Public Use
  Company Number: US-JNJFOC-20110203471

PATIENT
  Sex: Male

DRUGS (4)
  1. PERCOCET [Concomitant]
     Route: 048
  2. DURAGESIC-50 [Suspect]
     Indication: PRODUCT USED FOR UNKNOWN INDICATION
     Route: 062
  3. DURAGESIC-50 [Suspect]
     Route: 062
  4. DURAGESIC-50 [Suspect]
     Route: 062

REACTIONS (6)
  - MENTAL DISORDER [None]
  - WITHDRAWAL SYNDROME [None]
  - TREATMENT NONCOMPLIANCE [None]
  - SUICIDAL IDEATION [None]
  - SURGERY [None]
  - ABNORMAL LOSS OF WEIGHT [None]
